FAERS Safety Report 15114403 (Version 1)
Quarter: 2018Q3

REPORT INFORMATION
  Report Type: Spontaneous
  Country: BR (occurrence: BR)
  Receive Date: 20180706
  Receipt Date: 20180706
  Transmission Date: 20181010
  Serious: Yes (Other)
  Sender: FDA-Public Use
  Company Number: PHHY2018BR034510

PATIENT
  Sex: Female
  Weight: 40 kg

DRUGS (1)
  1. RITALIN LA [Suspect]
     Active Substance: METHYLPHENIDATE HYDROCHLORIDE
     Indication: ATTENTION DEFICIT/HYPERACTIVITY DISORDER
     Dosage: 1 DF, QD
     Route: 048

REACTIONS (6)
  - Memory impairment [Recovering/Resolving]
  - Performance status decreased [Recovering/Resolving]
  - Anxiety [Unknown]
  - Learning disorder [Recovering/Resolving]
  - Feeling abnormal [Unknown]
  - Educational problem [Recovering/Resolving]
